FAERS Safety Report 6908947-9 (Version None)
Quarter: 2010Q3

REPORT INFORMATION
  Report Type: 
  Country: None (occurrence: None)
  Receive Date: 20100805
  Receipt Date: 20100727
  Transmission Date: 20110219
  Serious: Yes (Disabling)
  Sender: FDA-Public Use
  Company Number: US-KINGPHARMUSA00001-K201000954

PATIENT
  Age: 58 Year
  Sex: Female
  Weight: 55.782 kg

DRUGS (5)
  1. CORGARD [Suspect]
     Indication: HYPERTENSION
     Dosage: 40 MG, QD
     Route: 048
     Dates: start: 19900101, end: 20100101
  2. CORGARD [Suspect]
     Indication: MIGRAINE
     Dosage: 40 MG, QD
     Route: 048
     Dates: start: 20100701
  3. PROGESTERONE [Concomitant]
     Indication: HORMONE REPLACEMENT THERAPY
     Dosage: UNK
  4. MULTI-VITAMIN [Concomitant]
     Dosage: UNK
  5. CALCIUM [Concomitant]
     Dosage: UNK

REACTIONS (5)
  - BRONCHIECTASIS [None]
  - CORNEAL DYSTROPHY [None]
  - CORNEAL OEDEMA [None]
  - VISUAL ACUITY REDUCED [None]
  - VISUAL IMPAIRMENT [None]
